APPROVED DRUG PRODUCT: MIGLUSTAT
Active Ingredient: MIGLUSTAT
Strength: 100MG
Dosage Form/Route: CAPSULE;ORAL
Application: A208342 | Product #001 | TE Code: AB
Applicant: ANI PHARMACEUTICALS INC
Approved: Apr 17, 2018 | RLD: No | RS: No | Type: RX